FAERS Safety Report 8352053-6 (Version None)
Quarter: 2012Q2

REPORT INFORMATION
  Report Type: 
  Country: None (occurrence: None)
  Receive Date: 20120511
  Receipt Date: 20120430
  Transmission Date: 20120825
  Serious: No
  Sender: FDA-Public Use
  Company Number: CA-JNJFOC-20120502115

PATIENT
  Sex: Female
  Weight: 61.5 kg

DRUGS (2)
  1. REMICADE [Suspect]
     Indication: CROHN'S DISEASE
     Dosage: 21 INFUSION
     Route: 042
     Dates: start: 20120306
  2. REMICADE [Suspect]
     Route: 042

REACTIONS (1)
  - GENITAL HERPES [None]
